FAERS Safety Report 16317954 (Version 2)
Quarter: 2019Q2

REPORT INFORMATION
  Report Type: Report from Study
  Country: US (occurrence: US)
  Receive Date: 20190516
  Receipt Date: 20190531
  Transmission Date: 20190711
  Serious: Yes (Hospitalization, Other)
  Sender: FDA-Public Use
  Company Number: US-BIOGEN-2019BI00737846

PATIENT
  Age: 27 Year
  Sex: Female

DRUGS (2)
  1. SPINRAZA [Suspect]
     Active Substance: NUSINERSEN
     Indication: SPINAL MUSCULAR ATROPHY
     Route: 065
  2. AZITHROMYCIN ANHYDROUS. [Suspect]
     Active Substance: AZITHROMYCIN ANHYDROUS
     Indication: PRODUCT USED FOR UNKNOWN INDICATION
     Route: 065

REACTIONS (11)
  - Loss of consciousness [Recovered/Resolved]
  - Productive cough [Recovered/Resolved]
  - Nasopharyngitis [Unknown]
  - Pulmonary pain [Unknown]
  - Dyspnoea [Unknown]
  - Aspiration [Unknown]
  - Choking [Unknown]
  - Cardio-respiratory arrest [Unknown]
  - Drug hypersensitivity [Unknown]
  - Feeling abnormal [Unknown]
  - Chest pain [Unknown]

NARRATIVE: CASE EVENT DATE: 201905
